FAERS Safety Report 18162173 (Version 1)
Quarter: 2020Q3

REPORT INFORMATION
  Report Type: Spontaneous
  Country: US (occurrence: US)
  Receive Date: 20200818
  Receipt Date: 20200818
  Transmission Date: 20201103
  Serious: Yes (Hospitalization, Disabling, Other)
  Sender: FDA-Public Use
  Company Number: US-SA-2020SA213770

PATIENT

DRUGS (1)
  1. ZANTAC [Suspect]
     Active Substance: RANITIDINE HYDROCHLORIDE
     Indication: DYSPEPSIA
     Dosage: UNK, Q4W
     Dates: start: 2009

REACTIONS (9)
  - Pain [Unknown]
  - Anxiety [Unknown]
  - Economic problem [Unknown]
  - Injury [Unknown]
  - Emotional distress [Unknown]
  - Loss of personal independence in daily activities [Unknown]
  - Disability [Unknown]
  - Pancreatic carcinoma [Unknown]
  - Mental disorder [Unknown]
